FAERS Safety Report 17413826 (Version 1)
Quarter: 2020Q1

REPORT INFORMATION
  Report Type: Spontaneous
  Country: GR (occurrence: GR)
  Receive Date: 20200213
  Receipt Date: 20200213
  Transmission Date: 20200409
  Serious: Yes (Hospitalization)
  Sender: FDA-Public Use
  Company Number: GR-ASTRAZENECA-2019SE55843

PATIENT
  Age: 50 Year
  Sex: Female

DRUGS (4)
  1. LECALCIF [Concomitant]
     Active Substance: CHOLECALCIFEROL
  2. XIGDUO XR [Suspect]
     Active Substance: DAPAGLIFLOZIN PROPANEDIOL\METFORMIN HYDROCHLORIDE
     Route: 048
  3. T4 [Concomitant]
     Active Substance: LEVOTHYROXINE
  4. TRULICITY [Concomitant]
     Active Substance: DULAGLUTIDE
     Route: 048

REACTIONS (1)
  - Euglycaemic diabetic ketoacidosis [Recovered/Resolved]
